FAERS Safety Report 10216100 (Version 1)
Quarter: 2014Q2

REPORT INFORMATION
  Report Type: Spontaneous
  Country: AU (occurrence: AU)
  Receive Date: 20140604
  Receipt Date: 20140604
  Transmission Date: 20141212
  Serious: Yes (Death)
  Sender: FDA-Public Use
  Company Number: AU-009507513-1405AUS014358

PATIENT
  Sex: 0

DRUGS (1)
  1. PROSCAR [Suspect]
     Dosage: UNK

REACTIONS (1)
  - Death [Fatal]
